FAERS Safety Report 10191647 (Version 1)
Quarter: 2014Q2

REPORT INFORMATION
  Report Type: Spontaneous
  Country: US (occurrence: None)
  Receive Date: 20140522
  Receipt Date: 20140522
  Transmission Date: 20141212
  Serious: Yes (Hospitalization)
  Sender: FDA-Public Use
  Company Number: None

PATIENT
  Age: 80 Year
  Sex: Male
  Weight: 72.7 kg

DRUGS (2)
  1. CARBOPLATIN 300 MG [Suspect]
  2. PACLITAXEL (TAXOL) 96 MG [Suspect]

REACTIONS (8)
  - Dizziness [None]
  - Dehydration [None]
  - Hypotension [None]
  - Fatigue [None]
  - Weight decreased [None]
  - Pancytopenia [None]
  - Fistula [None]
  - Device leakage [None]
